FAERS Safety Report 20462308 (Version 2)
Quarter: 2022Q1

REPORT INFORMATION
  Report Type: Report from Study
  Country: US (occurrence: US)
  Receive Date: 20220211
  Receipt Date: 20220315
  Transmission Date: 20220424
  Serious: Yes (Other)
  Sender: FDA-Public Use
  Company Number: US-PFIZER INC-202200205847

PATIENT
  Age: 68 Year
  Sex: Male
  Weight: 45.5 kg

DRUGS (3)
  1. BINIMETINIB [Suspect]
     Active Substance: BINIMETINIB
     Indication: Colon cancer
     Dosage: UNK UNK, 1X/DAY (QD)
     Route: 048
     Dates: start: 20191022, end: 20191208
  2. PEMBROLIZUMAB [Suspect]
     Active Substance: PEMBROLIZUMAB
     Indication: Colon cancer
     Dosage: 200 MG, Q3 WEEK
     Route: 042
     Dates: start: 20191030, end: 20211012
  3. BEVACIZUMAB [Suspect]
     Active Substance: BEVACIZUMAB
     Indication: Colon cancer
     Dosage: 7.5 MG/KG, Q3W
     Route: 042
     Dates: start: 20191030, end: 20210831

REACTIONS (1)
  - Colitis [Not Recovered/Not Resolved]

NARRATIVE: CASE EVENT DATE: 20220113
